FAERS Safety Report 9104624 (Version 3)
Quarter: 2013Q4

REPORT INFORMATION
  Report Type: Report from Study
  Country: FR (occurrence: FR)
  Receive Date: 20130219
  Receipt Date: 20131101
  Transmission Date: 20140711
  Serious: Yes (Death, Hospitalization)
  Sender: FDA-Public Use
  Company Number: FR-ROCHE-1192340

PATIENT
  Age: 67 Year
  Sex: Female

DRUGS (5)
  1. BEVACIZUMAB [Suspect]
     Indication: COLON CANCER
     Dosage: FORM STRENGTH:25 MG/ML
     Route: 042
     Dates: start: 20100609
  2. BEVACIZUMAB [Suspect]
     Indication: RECTAL CANCER
     Dosage: MAINTANANCE DOSE
     Route: 042
     Dates: start: 201012
  3. BEVACIZUMAB [Suspect]
     Route: 042
     Dates: start: 201105
  4. CAELYX [Suspect]
     Indication: COLON CANCER
     Dosage: FORM STRENGTH: 2MG/ML
     Route: 042
     Dates: start: 20100609
  5. CAELYX [Suspect]
     Indication: RECTAL CANCER
     Route: 042
     Dates: start: 201105

REACTIONS (3)
  - Intestinal perforation [Fatal]
  - Neutropenia [Unknown]
  - Thrombocytopenia [Unknown]
